FAERS Safety Report 7839921-6 (Version None)
Quarter: 2011Q4

REPORT INFORMATION
  Report Type: 
  Country: None (occurrence: None)
  Receive Date: 20111025
  Receipt Date: 20111017
  Transmission Date: 20120403
  Serious: No
  Sender: FDA-Public Use
  Company Number: US-BIOGENIDEC-2011BI039570

PATIENT
  Age: 45 Year
  Sex: Male

DRUGS (3)
  1. SOMA [Concomitant]
     Indication: SLEEP DISORDER
  2. TYSABRI [Suspect]
     Indication: MULTIPLE SCLEROSIS
     Route: 042
     Dates: start: 20110926
  3. LORTAB [Concomitant]
     Indication: PAIN

REACTIONS (5)
  - DEPRESSION [None]
  - SLUGGISHNESS [None]
  - PRODUCTIVE COUGH [None]
  - NAUSEA [None]
  - FEELING ABNORMAL [None]
